FAERS Safety Report 9969618 (Version 3)
Quarter: 2014Q2

REPORT INFORMATION
  Report Type: Spontaneous
  Country: CA (occurrence: CA)
  Receive Date: 20140306
  Receipt Date: 20140403
  Transmission Date: 20141212
  Serious: Yes (Life-Threatening, Hospitalization, Other)
  Sender: FDA-Public Use
  Company Number: CA-009507513-1403CAN001858

PATIENT
  Age: 84 Year
  Sex: Female
  Weight: 47 kg

DRUGS (7)
  1. FOSAMAX [Suspect]
     Indication: OSTEOPOROSIS
     Dosage: 1 DF, QW
     Route: 048
     Dates: end: 20120301
  2. ENALAPRIL MALEATE [Concomitant]
  3. PRAVASTATIN SODIUM [Concomitant]
  4. GABAPENTIN [Concomitant]
  5. AMLODIPINE [Concomitant]
  6. ASPIRIN [Concomitant]
  7. HYDROCHLOROTHIAZIDE [Concomitant]

REACTIONS (10)
  - Traumatic lung injury [Recovered/Resolved]
  - Foreign body aspiration [Recovered/Resolved]
  - Choking [Recovered/Resolved]
  - Stridor [Recovered/Resolved]
  - Cough [Recovered/Resolved]
  - Dyspnoea [Recovered/Resolved]
  - Debridement [Recovered/Resolved]
  - Skin exfoliation [Recovered/Resolved]
  - Obstructive airways disorder [Recovered/Resolved]
  - Drug administration error [Unknown]
